FAERS Safety Report 20895074 (Version 1)
Quarter: 2022Q2

REPORT INFORMATION
  Report Type: Spontaneous
  Country: US (occurrence: None)
  Receive Date: 20220528
  Receipt Date: 20220528
  Transmission Date: 20220721
  Serious: Yes (Hospitalization)
  Sender: FDA-Public Use
  Company Number: None

PATIENT
  Sex: Male
  Weight: 84.5 kg

DRUGS (3)
  1. DARATUMUMAB\HYALURONIDASE-FIHJ [Suspect]
     Active Substance: DARATUMUMAB\HYALURONIDASE-FIHJ
     Dates: end: 20211217
  2. DEXAMETHASONE [Suspect]
     Active Substance: DEXAMETHASONE
     Dates: end: 20211218
  3. LENALIDOMIDE [Suspect]
     Active Substance: LENALIDOMIDE
     Dates: end: 20211223

REACTIONS (10)
  - Fatigue [None]
  - Acute respiratory failure [None]
  - Pyrexia [None]
  - Tachycardia [None]
  - Tachypnoea [None]
  - Anaemia [None]
  - Lung infiltration [None]
  - Cardiomegaly [None]
  - Sepsis [None]
  - Brain natriuretic peptide increased [None]

NARRATIVE: CASE EVENT DATE: 20220210
